FAERS Safety Report 7712886-3 (Version None)
Quarter: 2011Q3

REPORT INFORMATION
  Report Type: 
  Country: None (occurrence: None)
  Receive Date: 20110826
  Receipt Date: 20110818
  Transmission Date: 20111222
  Serious: Yes (Other)
  Sender: FDA-Public Use
  Company Number: PHBS2006JP16020

PATIENT
  Sex: Male
  Weight: 55 kg

DRUGS (2)
  1. NEORAL [Suspect]
     Dosage: 150 MG/D
     Route: 048
     Dates: start: 20060621
  2. NEORAL [Suspect]
     Indication: PSORIASIS
     Dosage: 100 MG, UNK
     Route: 048
     Dates: start: 20040901, end: 20060620

REACTIONS (9)
  - UPPER RESPIRATORY TRACT INFECTION [None]
  - RASH [None]
  - IRIDOCYCLITIS [None]
  - UPPER RESPIRATORY TRACT INFLAMMATION [None]
  - UVEITIS [None]
  - VISUAL ACUITY REDUCED [None]
  - ARTHRALGIA [None]
  - VISION BLURRED [None]
  - PSORIASIS [None]
